FAERS Safety Report 7990797-6 (Version None)
Quarter: 2011Q4

REPORT INFORMATION
  Report Type: 
  Country: None (occurrence: None)
  Receive Date: 20111123
  Receipt Date: 20111024
  Transmission Date: 20120403
  Serious: No
  Sender: FDA-Public Use
  Company Number: 338285

PATIENT
  Age: 72 Year
  Sex: Female
  Weight: 78.9 kg

DRUGS (2)
  1. VICTOZA [Suspect]
     Indication: TYPE 2 DIABETES MELLITUS
     Dosage: 0.6 MG, QD;  1.2 MG, QD
     Dates: start: 20110901, end: 20111024
  2. VICTOZA [Suspect]
     Indication: TYPE 2 DIABETES MELLITUS
     Dosage: 0.6 MG, QD;  1.2 MG, QD
     Dates: start: 20110830, end: 20110901

REACTIONS (2)
  - DIARRHOEA [None]
  - WEIGHT DECREASED [None]
